FAERS Safety Report 18387431 (Version 2)
Quarter: 2020Q4

REPORT INFORMATION
  Report Type: Spontaneous
  Country: US (occurrence: US)
  Receive Date: 20201015
  Receipt Date: 20201021
  Transmission Date: 20210114
  Serious: No
  Sender: FDA-Public Use
  Company Number: NVSC2020US268769

PATIENT
  Sex: Female

DRUGS (1)
  1. KISQALI [Suspect]
     Active Substance: RIBOCICLIB
     Indication: PRODUCT USED FOR UNKNOWN INDICATION
     Dosage: 200 MG, (3 TABS ONCE DAILY FOR 21 DAYS FOLLOWED BY REST FOR 7 DAYS AND REPEATD EVERY 28 DAYS))
     Route: 048

REACTIONS (8)
  - Abdominal pain upper [Unknown]
  - Red blood cell count decreased [Unknown]
  - Gingival bleeding [Unknown]
  - Hot flush [Unknown]
  - Diarrhoea [Unknown]
  - White blood cell count decreased [Unknown]
  - Arthralgia [Unknown]
  - Flatulence [Unknown]
